FAERS Safety Report 4354030-9 (Version None)
Quarter: 2004Q2

REPORT INFORMATION
  Report Type: 
  Country: None (occurrence: None)
  Receive Date: 20040506
  Receipt Date: 20031006
  Transmission Date: 20050107
  Serious: No
  Sender: FDA-Public Use
  Company Number: US-GLAXOSMITHKLINE-A0429001A

PATIENT
  Age: 8 Year
  Sex: Female

DRUGS (1)
  1. AMOXIL [Suspect]
     Indication: ILL-DEFINED DISORDER
     Dosage: 1TSP THREE TIMES PER DAY
     Route: 048
     Dates: start: 20031001, end: 20031003

REACTIONS (3)
  - CHEILITIS [None]
  - HYPERSENSITIVITY [None]
  - RASH [None]
